FAERS Safety Report 9363104 (Version 1)
Quarter: 2013Q4

REPORT INFORMATION
  Report Type: Spontaneous
  Country: US (occurrence: None)
  Receive Date: 20130621
  Receipt Date: 20130621
  Transmission Date: 20140711
  Serious: Yes (Hospitalization)
  Sender: FDA-Public Use
  Company Number: None

PATIENT
  Age: 64 Year
  Sex: Female
  Weight: 61.6 kg

DRUGS (15)
  1. BORTEZOMIB [Suspect]
     Indication: ACUTE MYELOID LEUKAEMIA
     Dosage: SQ, 1.5MG/M2 D1, 4.8
     Dates: start: 20130611
  2. DOXORUBICIN [Suspect]
     Indication: ACUTE MYELOID LEUKAEMIA
     Dosage: IV 40MG/N2 D4
     Dates: start: 20130614
  3. ACYCLOVIR [Concomitant]
  4. DULCOLAX [Concomitant]
  5. PHOSLO [Concomitant]
  6. CIPRO [Concomitant]
  7. EPOETIN ALFA [Concomitant]
  8. FERROUS SULFATE [Concomitant]
  9. FOLIC ACID [Concomitant]
  10. NORCO [Concomitant]
  11. ATIVAN [Concomitant]
  12. PROVERA [Concomitant]
  13. NEPRO PO [Concomitant]
  14. FLAGYL [Concomitant]
  15. PRILOSEC [Concomitant]

REACTIONS (3)
  - Nausea [None]
  - Chills [None]
  - Febrile neutropenia [None]
